FAERS Safety Report 4505094-0 (Version None)
Quarter: 2004Q4

REPORT INFORMATION
  Report Type: 
  Country: None (occurrence: None)
  Receive Date: 20041119
  Receipt Date: 20041109
  Transmission Date: 20050328
  Serious: Yes (Hospitalization)
  Sender: FDA-Public Use
  Company Number: FR-ABBOTT-04P-056-0280120-00

PATIENT
  Sex: Female

DRUGS (4)
  1. HUMIRA [Suspect]
     Indication: PSORIATIC ARTHROPATHY
     Dosage: 40 MG
     Route: 058
     Dates: start: 20040302, end: 20041026
  2. BETA-ALANINE [Concomitant]
     Indication: HOT FLUSH
     Dates: start: 20040410, end: 20040626
  3. ROFECOXIB [Concomitant]
     Indication: PSORIATIC ARTHROPATHY
     Dates: start: 20020101, end: 20040816
  4. ROFECOXIB [Concomitant]
     Dates: start: 20040817, end: 20041001

REACTIONS (3)
  - LEUKOCYTOSIS [None]
  - PULMONARY ALVEOLAR HAEMORRHAGE [None]
  - PYREXIA [None]
